FAERS Safety Report 15120473 (Version 1)
Quarter: 2018Q3

REPORT INFORMATION
  Report Type: Spontaneous
  Country: US (occurrence: US)
  Receive Date: 20180709
  Receipt Date: 20180709
  Transmission Date: 20181010
  Serious: Yes (Hospitalization)
  Sender: FDA-Public Use
  Company Number: US-GLENMARK PHARMACEUTICALS-2018GMK036351

PATIENT
  Age: 68 Year
  Sex: Female

DRUGS (2)
  1. METHOTREXATE. [Interacting]
     Active Substance: METHOTREXATE
     Indication: RHEUMATOID ARTHRITIS
     Dosage: 10 MG, QW
     Route: 065
  2. SULFAMETHOXAZOLE/TRIMETHOPRIM [Suspect]
     Active Substance: SULFAMETHOXAZOLE\TRIMETHOPRIM
     Indication: SKIN BACTERIAL INFECTION
     Dosage: UNK
     Route: 065

REACTIONS (15)
  - Neutrophil count decreased [Unknown]
  - Lethargy [Unknown]
  - Hypophagia [Unknown]
  - Lip ulceration [Unknown]
  - Influenza like illness [Unknown]
  - Rash erythematous [Recovering/Resolving]
  - Leukopenia [Recovering/Resolving]
  - Drug interaction [Unknown]
  - Stomatitis [Unknown]
  - Drug level increased [Unknown]
  - Toxicity to various agents [Unknown]
  - Mucocutaneous ulceration [Unknown]
  - Hypotension [Recovering/Resolving]
  - Renal failure [Recovering/Resolving]
  - Asthenia [Unknown]
